FAERS Safety Report 7960601-0 (Version None)
Quarter: 2011Q4

REPORT INFORMATION
  Report Type: 
  Country: None (occurrence: None)
  Receive Date: 20111206
  Receipt Date: 20111201
  Transmission Date: 20120403
  Serious: Yes (Hospitalization)
  Sender: FDA-Public Use
  Company Number: FR-MERCK-1112FRA00009

PATIENT
  Age: 47 Year
  Sex: Male
  Weight: 88 kg

DRUGS (6)
  1. GLIMEPIRIDE [Concomitant]
     Route: 048
  2. AMLODIPINE BESYLATE AND ATORVASTATIN CALCIUM [Concomitant]
     Route: 048
  3. METFORMIN [Concomitant]
     Route: 048
  4. JANUVIA [Suspect]
     Route: 048
     Dates: end: 20110101
  5. METFORMIN HYDROCHLORIDE AND SITAGLIPTIN PHOSPHATE [Concomitant]
     Route: 048
     Dates: end: 20110101
  6. HYDROCHLOROTHIAZIDE AND RAMIPRIL [Concomitant]
     Route: 048

REACTIONS (1)
  - ARTHRALGIA [None]
